FAERS Safety Report 10811113 (Version 1)
Quarter: 2015Q1

REPORT INFORMATION
  Report Type: Report from Study
  Country: US (occurrence: US)
  Receive Date: 20150217
  Receipt Date: 20150217
  Transmission Date: 20150721
  Serious: No
  Sender: FDA-Public Use
  Company Number: US-ABBVIE-14K-163-1270227-00

PATIENT
  Age: 30 Year
  Sex: Female

DRUGS (2)
  1. HUMIRA [Suspect]
     Active Substance: ADALIMUMAB
     Indication: CROHN^S DISEASE
     Dates: start: 201011
  2. ASACOL [Suspect]
     Active Substance: MESALAMINE
     Indication: ABDOMINAL PAIN UPPER
     Dates: start: 20140803

REACTIONS (6)
  - Fear of injection [Unknown]
  - Fatigue [Recovered/Resolved]
  - Faeces discoloured [Unknown]
  - Dry mouth [Recovered/Resolved]
  - Abdominal pain upper [Unknown]
  - Inappropriate schedule of drug administration [Unknown]

NARRATIVE: CASE EVENT DATE: 2013
